FAERS Safety Report 4512724-6 (Version None)
Quarter: 2004Q4

REPORT INFORMATION
  Report Type: 
  Country: None (occurrence: None)
  Receive Date: 20040928
  Receipt Date: 20040603
  Transmission Date: 20050328
  Serious: No
  Sender: FDA-Public Use
  Company Number: 04P-163-0264263-00

PATIENT
  Age: 45 Year
  Sex: Female
  Weight: 90.2658 kg

DRUGS (3)
  1. HUMIRA [Suspect]
     Indication: PSORIATIC ARTHROPATHY
     Dosage: 40 MG, 1 IN 2 WK, PER ORAL
     Route: 048
     Dates: start: 20040311, end: 20040602
  2. NABUMETONE [Concomitant]
  3. MULTI-VITAMINS [Concomitant]

REACTIONS (1)
  - HYPERTENSION [None]
